FAERS Safety Report 10482425 (Version 2)
Quarter: 2014Q4

REPORT INFORMATION
  Report Type: Spontaneous
  Country: US (occurrence: US)
  Receive Date: 20140929
  Receipt Date: 20141112
  Transmission Date: 20150528
  Serious: Yes (Hospitalization)
  Sender: FDA-Public Use
  Company Number: US-BAYER-2014-143521

PATIENT
  Age: 24 Year
  Sex: Female
  Weight: 61.22 kg

DRUGS (2)
  1. MIRENA [Suspect]
     Active Substance: LEVONORGESTREL
     Dosage: 20 MCG/24HR, CONT
     Route: 015
     Dates: start: 20100514, end: 20100702
  2. MIRENA [Suspect]
     Active Substance: LEVONORGESTREL
     Dosage: 20 MCG/24HR, CONT
     Route: 015
     Dates: start: 20100702, end: 20120301

REACTIONS (4)
  - Emotional distress [None]
  - Uterine perforation [None]
  - Injury [None]
  - Pain [None]

NARRATIVE: CASE EVENT DATE: 20120301
